FAERS Safety Report 10476048 (Version 2)
Quarter: 2014Q4

REPORT INFORMATION
  Report Type: Spontaneous
  Country: JP (occurrence: JP)
  Receive Date: 20140925
  Receipt Date: 20141006
  Transmission Date: 20150528
  Serious: Yes (Other)
  Sender: FDA-Public Use
  Company Number: PHJP2014JP001173

PATIENT
  Age: 43 Year
  Sex: Female

DRUGS (4)
  1. TEGRETOL [Suspect]
     Active Substance: CARBAMAZEPINE
     Dosage: HALF TABLET (0.5 DF) WAS TAKEN IN THE EVENING
     Route: 048
  2. TEGRETOL [Suspect]
     Active Substance: CARBAMAZEPINE
     Dosage: 50 MG, QD
     Route: 048
  3. TEGRETOL [Suspect]
     Active Substance: CARBAMAZEPINE
     Indication: EPILEPSY
     Dosage: 100 MG, BID (IN THE MORNING AND EVENING)
     Route: 048
     Dates: start: 2012
  4. SODIUM VALPROATE [Concomitant]
     Active Substance: VALPROATE SODIUM
     Dosage: 600 MG, QD (IN THE MORNING)
     Route: 048
     Dates: start: 2009

REACTIONS (5)
  - Myoclonic epilepsy [Unknown]
  - Insomnia [Unknown]
  - Malaise [Unknown]
  - Petit mal epilepsy [Unknown]
  - Breast cancer [Unknown]
